FAERS Safety Report 25627054 (Version 1)
Quarter: 2025Q3

REPORT INFORMATION
  Report Type: Spontaneous
  Country: US (occurrence: None)
  Receive Date: 20250730
  Receipt Date: 20250730
  Transmission Date: 20251021
  Serious: Yes (Hospitalization)
  Sender: FDA-CTU
  Company Number: None

PATIENT
  Sex: Female

DRUGS (11)
  1. LENALIDOMIDE [Suspect]
     Active Substance: LENALIDOMIDE
     Indication: Myelodysplastic syndrome
     Route: 048
     Dates: start: 20250730
  2. ACETAMINOPHE [Concomitant]
  3. AMOXICILLIN [Concomitant]
     Active Substance: AMOXICILLIN
  4. ATORVASTATIN [Concomitant]
     Active Substance: ATORVASTATIN
  5. CARAFATE [Concomitant]
     Active Substance: SUCRALFATE
  6. CLOTRIM/BETA CRE DIPROP [Concomitant]
  7. ELIQUIS [Concomitant]
     Active Substance: APIXABAN
  8. FUROSEMIDE [Concomitant]
     Active Substance: FUROSEMIDE
  9. HUMALOG KWIK [Concomitant]
  10. KLOR-CON M10 10MEQ ER [Concomitant]
  11. LANTUS SOLOS [Concomitant]

REACTIONS (3)
  - Anaemia [None]
  - Diarrhoea [None]
  - Therapy interrupted [None]
